FAERS Safety Report 23612269 (Version 2)
Quarter: 2024Q1

REPORT INFORMATION
  Report Type: Spontaneous
  Country: FR (occurrence: FR)
  Receive Date: 20240308
  Receipt Date: 20240328
  Transmission Date: 20240409
  Serious: Yes (Other)
  Sender: FDA-Public Use
  Company Number: FR-BAYER-2024A035222

PATIENT
  Age: 49 Year
  Sex: Female
  Weight: 78 kg

DRUGS (2)
  1. GADOBUTROL [Suspect]
     Active Substance: GADOBUTROL
     Indication: Magnetic resonance imaging
     Dosage: 7.5 ML, ONCE
     Route: 042
     Dates: start: 20240305, end: 20240305
  2. GADOBUTROL [Suspect]
     Active Substance: GADOBUTROL
     Indication: Vestibular neuronitis

REACTIONS (3)
  - Oedema mucosal [Recovered/Resolved]
  - Skin reaction [Recovered/Resolved]
  - Blood pressure decreased [Recovered/Resolved]

NARRATIVE: CASE EVENT DATE: 20240305
